FAERS Safety Report 9367668 (Version 2)
Quarter: 2013Q3

REPORT INFORMATION
  Report Type: Spontaneous
  Country: US (occurrence: DE)
  Receive Date: 20130625
  Receipt Date: 20130710
  Transmission Date: 20140515
  Serious: Yes (Other)
  Sender: FDA-Public Use
  Company Number: DE-FRI-1000046157

PATIENT
  Age: 38 Year
  Sex: Female

DRUGS (1)
  1. LINACLOTIDE [Suspect]
     Indication: IRRITABLE BOWEL SYNDROME
     Dosage: 290 MCG
     Dates: start: 20130528, end: 20130605

REACTIONS (1)
  - Angioedema [Recovered/Resolved]
